FAERS Safety Report 17707813 (Version 1)
Quarter: 2020Q2

REPORT INFORMATION
  Report Type: Spontaneous
  Country: US (occurrence: US)
  Receive Date: 20200424
  Receipt Date: 20200424
  Transmission Date: 20200714
  Serious: Yes (Hospitalization, Other)
  Sender: FDA-Public Use
  Company Number: US-MYLANLABS-2020M1040656

PATIENT
  Age: 76 Year
  Sex: Female

DRUGS (10)
  1. METOPROLOL                         /00376902/ [Suspect]
     Active Substance: METOPROLOL TARTRATE
     Dosage: 125 MILLIGRAM, BID
     Route: 048
     Dates: start: 2020
  2. TIKOSYN [Concomitant]
     Active Substance: DOFETILIDE
     Indication: PULMONARY ARTERIAL HYPERTENSION
  3. METRONIDAZOLE. [Concomitant]
     Active Substance: METRONIDAZOLE
     Indication: DIARRHOEA
     Dosage: 1 DOSAGE FORM, TID
     Route: 048
     Dates: start: 20200226
  4. DIGOXIN. [Suspect]
     Active Substance: DIGOXIN
     Indication: TACHYCARDIA
     Dosage: UNK
     Dates: start: 202002
  5. WARFARIN [Concomitant]
     Active Substance: WARFARIN
  6. SILDENAFIL. [Concomitant]
     Active Substance: SILDENAFIL
  7. METOPROLOL                         /00376902/ [Suspect]
     Active Substance: METOPROLOL TARTRATE
     Indication: TACHYCARDIA
     Dosage: 100 MILLIGRAM, BID
     Route: 048
     Dates: start: 202002
  8. BOSENTAN. [Suspect]
     Active Substance: BOSENTAN
     Indication: PULMONARY ARTERIAL HYPERTENSION
     Dosage: 1 DOSAGE FORM, BID
     Route: 048
     Dates: start: 2019
  9. UPTRAVI [Concomitant]
     Active Substance: SELEXIPAG
     Indication: PULMONARY ARTERIAL HYPERTENSION
     Dosage: 1600 MICROGRAM, BID
  10. IMODIUM [Concomitant]
     Active Substance: LOPERAMIDE HYDROCHLORIDE
     Indication: DIARRHOEA
     Dosage: UNK
     Dates: start: 20200225

REACTIONS (11)
  - Fatigue [Not Recovered/Not Resolved]
  - Nausea [Not Recovered/Not Resolved]
  - Dyspepsia [Not Recovered/Not Resolved]
  - Hypertension [Unknown]
  - Diarrhoea [Recovered/Resolved]
  - Vomiting [Not Recovered/Not Resolved]
  - Weight decreased [Unknown]
  - Tachycardia [Recovered/Resolved]
  - Atrial fibrillation [Not Recovered/Not Resolved]
  - Dyspnoea [Not Recovered/Not Resolved]
  - Joint swelling [Not Recovered/Not Resolved]

NARRATIVE: CASE EVENT DATE: 2020
